FAERS Safety Report 16689378 (Version 1)
Quarter: 2019Q3

REPORT INFORMATION
  Report Type: Report from Study
  Country: RU (occurrence: RU)
  Receive Date: 20190809
  Receipt Date: 20190809
  Transmission Date: 20191004
  Serious: Yes (Other)
  Sender: FDA-Public Use
  Company Number: RU-ASTRAZENECA-2019SF12396

PATIENT
  Age: 62 Year
  Sex: Female
  Weight: 90 kg

DRUGS (10)
  1. URSOSAN [Concomitant]
     Active Substance: URSODIOL
  2. APROVASK [Concomitant]
  3. HERBAL NOS [Concomitant]
     Active Substance: HERBALS
     Indication: RENAL DISORDER
  4. IVABRADINE [Concomitant]
     Active Substance: IVABRADINE
  5. FORXIGA [Suspect]
     Active Substance: DAPAGLIFLOZIN
     Indication: TYPE 2 DIABETES MELLITUS
     Route: 048
  6. BEROTEC [Concomitant]
     Active Substance: FENOTEROL HYDROBROMIDE
  7. PHYSIOTENS [Concomitant]
     Active Substance: MOXONIDINE
  8. GLUCOPHAGE LONG [Concomitant]
  9. SERETIDE [Concomitant]
     Active Substance: FLUTICASONE PROPIONATE\SALMETEROL XINAFOATE
  10. PLAGRIL [Concomitant]
     Active Substance: CLOPIDOGREL BISULFATE

REACTIONS (3)
  - Asthenia [Not Recovered/Not Resolved]
  - Weight decreased [Not Recovered/Not Resolved]
  - Blood pressure fluctuation [Not Recovered/Not Resolved]
